FAERS Safety Report 7944760-1 (Version None)
Quarter: 2011Q4

REPORT INFORMATION
  Report Type: 
  Country: None (occurrence: None)
  Receive Date: 20111114
  Receipt Date: 20110914
  Transmission Date: 20120403
  Serious: No
  Sender: FDA-Public Use
  Company Number: 1000006560

PATIENT
  Age: 60 Year
  Sex: Female

DRUGS (3)
  1. DIOVAN HCT [Concomitant]
  2. SAVELLA [Suspect]
     Indication: FIBROMYALGIA
     Dosage: 12.5 MG (12.5 MG, 1 IN 1 D), ORAL ;
     Route: 048
     Dates: start: 20090523, end: 20090523
  3. ACETAMINOPHEN [Concomitant]

REACTIONS (3)
  - NAUSEA [None]
  - BLOOD PRESSURE INCREASED [None]
  - HEADACHE [None]
